FAERS Safety Report 18692616 (Version 1)
Quarter: 2021Q1

REPORT INFORMATION
  Report Type: Other
  Country: PR (occurrence: PR)
  Receive Date: 20210103
  Receipt Date: 20210103
  Transmission Date: 20210419
  Serious: Yes (Hospitalization)
  Sender: FDA-Public Use
  Company Number: PR-SAPTALIS PHARMACEUTICALS,LLC-000012

PATIENT
  Age: 45 Year
  Sex: Female

DRUGS (5)
  1. HYDROCORTISONE. [Suspect]
     Active Substance: HYDROCORTISONE
     Indication: OTITIS EXTERNA
     Route: 001
  2. ACETIC ACID. [Suspect]
     Active Substance: ACETIC ACID
     Indication: OTITIS EXTERNA
     Route: 001
  3. NEOMYCIN?POLYMYXIN B?HYDROCORTISONE [Suspect]
     Active Substance: HYDROCORTISONE\NEOMYCIN\POLYMYXIN B
     Indication: OTITIS EXTERNA
     Dosage: 4 TIMES PER DAY
     Route: 001
  4. HYDROCORTISONE. [Suspect]
     Active Substance: HYDROCORTISONE
     Indication: OTITIS EXTERNA
     Dosage: 4 TIMES PER DAY
     Route: 001
  5. ACETIC ACID. [Suspect]
     Active Substance: ACETIC ACID
     Indication: OTITIS EXTERNA
     Dosage: 4 TIMES PER DAY
     Route: 001

REACTIONS (1)
  - Dermatitis contact [Recovered/Resolved]
